FAERS Safety Report 5034026-4 (Version None)
Quarter: 2006Q2

REPORT INFORMATION
  Report Type: 
  Country: None (occurrence: None)
  Receive Date: 20060626
  Receipt Date: 20060614
  Transmission Date: 20061013
  Serious: Yes (Other)
  Sender: FDA-Public Use
  Company Number: PL-JNJFOC-20060603543

PATIENT
  Sex: Male
  Weight: 29 kg

DRUGS (2)
  1. CONCERTA [Suspect]
     Indication: ATTENTION DEFICIT/HYPERACTIVITY DISORDER
     Route: 048
  2. CONVULEX [Concomitant]
     Indication: EPILEPSY
     Route: 048

REACTIONS (10)
  - APNOEA [None]
  - ASPARTATE AMINOTRANSFERASE INCREASED [None]
  - BLOOD CREATINE PHOSPHOKINASE INCREASED [None]
  - CHOREA [None]
  - DELIRIUM [None]
  - DRY MOUTH [None]
  - DYSTONIA [None]
  - MUSCULAR WEAKNESS [None]
  - TIC [None]
  - WHITE BLOOD CELL COUNT INCREASED [None]
